FAERS Safety Report 11227120 (Version 2)
Quarter: 2016Q2

REPORT INFORMATION
  Report Type: Spontaneous
  Country: FR (occurrence: FR)
  Receive Date: 20150630
  Receipt Date: 20160419
  Transmission Date: 20160815
  Serious: Yes (Hospitalization)
  Sender: FDA-Public Use
  Company Number: FR-ABBVIE-15K-056-1416027-00

PATIENT
  Age: 61 Year
  Sex: Female

DRUGS (6)
  1. CORTANCYL [Suspect]
     Active Substance: PREDNISONE
     Route: 065
  2. HYDROCORTISONE. [Suspect]
     Active Substance: HYDROCORTISONE
     Indication: RHEUMATOID ARTHRITIS
     Route: 048
     Dates: start: 20150401
  3. SPECIAFOLDINE [Concomitant]
     Active Substance: FOLIC ACID
     Indication: PRODUCT USED FOR UNKNOWN INDICATION
     Route: 048
  4. CORTANCYL [Suspect]
     Active Substance: PREDNISONE
     Indication: RHEUMATOID ARTHRITIS
     Route: 048
     Dates: start: 201404, end: 20150401
  5. IMETH [Suspect]
     Active Substance: METHOTREXATE SODIUM
     Indication: RHEUMATOID ARTHRITIS
     Route: 048
     Dates: start: 2010
  6. HUMIRA [Suspect]
     Active Substance: ADALIMUMAB
     Indication: RHEUMATOID ARTHRITIS
     Route: 058
     Dates: start: 20150212

REACTIONS (12)
  - Rheumatoid factor increased [Unknown]
  - Cough [Recovered/Resolved]
  - Blood albumin decreased [Unknown]
  - Alpha 2 globulin increased [Unknown]
  - Beta 2 microglobulin increased [Unknown]
  - Pulmonary fibrosis [Unknown]
  - Pulmonary fibrosis [Not Recovered/Not Resolved]
  - Chest X-ray abnormal [Recovering/Resolving]
  - Dyspnoea exertional [Recovered/Resolved]
  - Computerised tomogram thorax abnormal [Recovering/Resolving]
  - Bronchiectasis [Recovering/Resolving]
  - Bullous lung disease [Recovering/Resolving]

NARRATIVE: CASE EVENT DATE: 201504
